FAERS Safety Report 8955286 (Version 1)
Quarter: 2012Q4

REPORT INFORMATION
  Report Type: 
  Country: FR (occurrence: FR)
  Receive Date: 20121207
  Receipt Date: 20121207
  Transmission Date: 20130627
  Serious: Yes (Other)
  Sender: FDA-Public Use
  Company Number: FR-009507513-1211FRA012224

PATIENT
  Age: 43 Year
  Sex: Female

DRUGS (3)
  1. ESMERON [Suspect]
     Indication: INDUCTION OF ANAESTHESIA
     Dosage: 350 mg, Once
     Route: 042
     Dates: start: 20121107, end: 20121107
  2. PROPOFOL [Suspect]
     Indication: INDUCTION OF ANAESTHESIA
     Dosage: 130 mg, Once
     Route: 042
     Dates: start: 20121107, end: 20121107
  3. SUFENTANIL [Suspect]
     Indication: INDUCTION OF ANAESTHESIA
     Dosage: 20 Microgram, Once
     Route: 042
     Dates: start: 20121107, end: 20121107

REACTIONS (4)
  - Tachycardia [Recovered/Resolved]
  - Urticaria [Recovered/Resolved]
  - Hypotension [Recovered/Resolved]
  - Bronchospasm [Recovered/Resolved]
